FAERS Safety Report 9276131 (Version 1)
Quarter: 2013Q2

REPORT INFORMATION
  Report Type: Spontaneous
  Country: US (occurrence: US)
  Receive Date: 20130507
  Receipt Date: 20130507
  Transmission Date: 20140414
  Serious: Yes (Other)
  Sender: FDA-Public Use
  Company Number: US-TEVA-402815USA

PATIENT
  Sex: 0

DRUGS (1)
  1. COPAXONE [Suspect]
     Dates: start: 201305

REACTIONS (2)
  - Extraocular muscle paresis [Unknown]
  - Facial paresis [Unknown]
